FAERS Safety Report 7880760-8 (Version None)
Quarter: 2011Q4

REPORT INFORMATION
  Report Type: 
  Country: None (occurrence: None)
  Receive Date: 20111101
  Receipt Date: 20111026
  Transmission Date: 20120403
  Serious: Yes (Death)
  Sender: FDA-Public Use
  Company Number: UA-ROCHE-1001902

PATIENT
  Age: 50 Year
  Sex: Male

DRUGS (6)
  1. ACTIVASE [Suspect]
     Indication: ELECTROCARDIOGRAM ST SEGMENT ELEVATION
  2. NITROGLYCERIN [Concomitant]
  3. ACTIVASE [Suspect]
     Indication: MYOCARDIAL INFARCTION
     Dosage: 75-80 MG
     Route: 042
     Dates: start: 20110822, end: 20110822
  4. ASPIRIN [Concomitant]
  5. MORPHINE [Concomitant]
  6. HEPARIN [Concomitant]

REACTIONS (3)
  - HAEMOPTYSIS [None]
  - PULMONARY HAEMORRHAGE [None]
  - COUGH [None]
